FAERS Safety Report 7331033-3 (Version None)
Quarter: 2011Q1

REPORT INFORMATION
  Report Type: 
  Country: None (occurrence: None)
  Receive Date: 20110228
  Receipt Date: 20110228
  Transmission Date: 20110831
  Serious: No
  Sender: FDA-Public Use
  Company Number: None

PATIENT
  Age: 84 Year
  Sex: Male
  Weight: 90.7194 kg

DRUGS (1)
  1. ARICEPT [Suspect]
     Indication: DEMENTIA
     Dosage: 10MG 1 - AM ORAL
     Route: 048
     Dates: start: 20101207, end: 20110206

REACTIONS (6)
  - WEIGHT DECREASED [None]
  - ABNORMAL DREAMS [None]
  - NAUSEA [None]
  - INSOMNIA [None]
  - NASOPHARYNGITIS [None]
  - DECREASED APPETITE [None]
